FAERS Safety Report 9248309 (Version 2)
Quarter: 2013Q2

REPORT INFORMATION
  Report Type: Spontaneous
  Country: VE (occurrence: VE)
  Receive Date: 20130423
  Receipt Date: 20130424
  Transmission Date: 20140414
  Serious: Yes (Other)
  Sender: FDA-Public Use
  Company Number: VE-009507513-1304VEN010093

PATIENT
  Age: 60 Year
  Sex: Male

DRUGS (3)
  1. VYTORIN [Suspect]
     Indication: DYSLIPIDAEMIA
     Dosage: UNK
     Route: 048
     Dates: start: 2009
  2. AMLODIPINE [Concomitant]
     Dosage: UNK
     Dates: start: 2009
  3. IRBESARTAN [Concomitant]
     Dosage: UNK
     Dates: start: 2009

REACTIONS (1)
  - Deafness [Not Recovered/Not Resolved]
